FAERS Safety Report 7451446-9 (Version None)
Quarter: 2011Q2

REPORT INFORMATION
  Report Type: 
  Country: None (occurrence: None)
  Receive Date: 20110502
  Receipt Date: 20110422
  Transmission Date: 20111010
  Serious: Yes (Hospitalization)
  Sender: FDA-Public Use
  Company Number: A0911467A

PATIENT
  Age: 55 Year
  Sex: Female
  Weight: 140.9 kg

DRUGS (13)
  1. DIOVAN [Concomitant]
  2. AVANDAMET [Suspect]
     Indication: DIABETES MELLITUS
     Route: 048
     Dates: start: 20070601, end: 20070910
  3. AMARYL [Concomitant]
  4. NOVOLOG [Concomitant]
  5. ALBUTEROL [Concomitant]
  6. POTASSIUM [Concomitant]
  7. TESSALON [Concomitant]
  8. BYETTA [Concomitant]
  9. LASIX [Concomitant]
  10. LANOXIN [Concomitant]
  11. AVANDIA [Suspect]
     Dosage: 2MG TWICE PER DAY
     Route: 048
     Dates: start: 20030101
  12. ZAROXOLYN [Concomitant]
  13. LANTUS [Concomitant]

REACTIONS (3)
  - ATRIAL FIBRILLATION [None]
  - BUNDLE BRANCH BLOCK RIGHT [None]
  - CARDIAC FAILURE CONGESTIVE [None]
